FAERS Safety Report 7692460-8 (Version None)
Quarter: 2011Q3

REPORT INFORMATION
  Report Type: 
  Country: None (occurrence: None)
  Receive Date: 20110818
  Receipt Date: 20110805
  Transmission Date: 20111222
  Serious: Yes (Death, Life-Threatening, Hospitalization, Other)
  Sender: FDA-Public Use
  Company Number: JP-CELGENEUS-087-50794-11052607

PATIENT
  Sex: Female

DRUGS (51)
  1. KAZMARIN [Concomitant]
     Dosage: 15 MILLIGRAM
     Route: 048
     Dates: start: 20110330, end: 20110602
  2. UNASYN [Concomitant]
     Dosage: 3 DOSAGE FORMS
     Route: 048
     Dates: start: 20110401, end: 20110410
  3. FLAGYL [Concomitant]
     Dosage: 3 DOSAGE FORMS
     Route: 048
     Dates: start: 20110401, end: 20110410
  4. VOLVIX [Concomitant]
     Dosage: 1 DOSAGE FORMS
     Route: 041
     Dates: start: 20110428, end: 20110607
  5. MEROPENEM [Concomitant]
     Dosage: 6 GRAM
     Route: 041
     Dates: start: 20110519, end: 20110601
  6. VIDAZA [Suspect]
     Dosage: 75 MICROGRAM/SQ. METER
     Route: 058
     Dates: start: 20110330, end: 20110405
  7. AUZEI [Concomitant]
     Dosage: 3 DOSAGE FORMS
     Route: 048
     Dates: start: 20110330, end: 20110421
  8. MAGMITT [Concomitant]
     Dosage: 1-3DF
     Route: 048
     Dates: start: 20110401, end: 20110602
  9. BROACT [Concomitant]
     Dosage: 3 DOSAGE FORMS
     Route: 041
     Dates: start: 20110410, end: 20110413
  10. NEUTROGIN [Concomitant]
     Dosage: 100 MILLIGRAM
     Route: 041
     Dates: start: 20110413, end: 20110607
  11. ADONA [Concomitant]
     Dosage: 100 MILLIGRAM
     Route: 041
     Dates: start: 20110502, end: 20110607
  12. VIDAZA [Suspect]
     Dosage: 37.5 MILLIGRAM/SQ. METER
     Route: 058
     Dates: start: 20110513, end: 20110519
  13. ZYVOX [Concomitant]
     Dosage: 2 DOSAGE FORMS
     Route: 048
     Dates: start: 20110415, end: 20110415
  14. FULCALIQ [Concomitant]
     Dosage: 1 DOSAGE FORMS
     Route: 041
     Dates: start: 20110413, end: 20110607
  15. OMEGACIN [Concomitant]
     Dosage: 4 DOSAGE FORMS
     Route: 041
     Dates: start: 20110413, end: 20110425
  16. INTRALIPOS 10% [Concomitant]
     Dosage: 1 DOSAGE FORMS
     Route: 041
     Dates: start: 20110418, end: 20110531
  17. PASIL [Concomitant]
     Dosage: 2000 MILLIGRAM
     Route: 050
     Dates: start: 20110426, end: 20110509
  18. DORIPENEM MONOHYDRATE [Concomitant]
     Dosage: 3 GRAM
     Route: 041
     Dates: start: 20110505, end: 20110518
  19. DORIPENEM MONOHYDRATE [Concomitant]
     Dosage: 3 GRAM
     Route: 050
     Dates: start: 20110602, end: 20110607
  20. MIYA BM [Concomitant]
     Dosage: 1 MILLIGRAM
     Route: 048
     Dates: start: 20110330, end: 20110413
  21. ITRACONAZOLE [Concomitant]
     Dosage: 100 MILLIGRAM
     Route: 048
     Dates: start: 20110330, end: 20110418
  22. VALTREX [Concomitant]
     Dosage: 500 MILLIGRAM
     Route: 048
     Dates: start: 20110330, end: 20110602
  23. AMLODIPINE [Concomitant]
     Dosage: 2.5 MILLIGRAM
     Route: 048
     Dates: start: 20110330, end: 20110602
  24. LOXOPROFEN [Concomitant]
     Dosage: 1/4-1/2DF
     Route: 048
     Dates: start: 20110413, end: 20110602
  25. SPIRONOLACTONE [Concomitant]
     Dosage: 2 DOSAGE FORMS
     Route: 048
     Dates: start: 20110525, end: 20110529
  26. GRANISETRON [Concomitant]
     Dosage: 1 DOSAGE FORMS
     Route: 041
     Dates: start: 20110513, end: 20110519
  27. VITAMEDIN [Concomitant]
     Dosage: 1 DOSAGE FORMS
     Route: 041
     Dates: start: 20110415, end: 20110415
  28. AMBISOME [Concomitant]
     Dosage: 100 MILLIGRAM
     Route: 041
     Dates: start: 20110429, end: 20110429
  29. LASIX [Concomitant]
     Route: 050
     Dates: start: 20110527, end: 20110604
  30. AMIKACIN [Concomitant]
     Dosage: 400 MILLIGRAM
     Route: 050
     Dates: start: 20110601, end: 20110601
  31. POTASSIUM CHLORIDE [Concomitant]
     Dosage: 20 DOSAGE FORMS
     Route: 041
     Dates: start: 20110502, end: 20110607
  32. PRAVASTATIN [Concomitant]
     Dosage: 5 MILLIGRAM
     Route: 048
     Dates: start: 20110330, end: 20110602
  33. LANSOPRAZOLE [Concomitant]
     Dosage: 15 MILLIGRAM
     Route: 048
     Dates: start: 20110330, end: 20110602
  34. PRIMPERAN TAB [Concomitant]
     Dosage: 2 DOSAGE FORMS
     Route: 041
     Dates: start: 20110330, end: 20110330
  35. FUNGUARD [Concomitant]
     Dosage: 150 MILLIGRAM
     Route: 041
     Dates: start: 20110418, end: 20110428
  36. HUMULIN U [Concomitant]
     Dosage: 10-50 IU
     Route: 041
     Dates: start: 20110419, end: 20110607
  37. ALBUMIN (HUMAN) [Concomitant]
     Dosage: 100 MILLILITER
     Route: 041
     Dates: start: 20110426, end: 20110509
  38. LASIX [Concomitant]
     Dosage: 2 MILLILITER
     Route: 041
     Dates: start: 20110428, end: 20110502
  39. LASIX [Concomitant]
     Dosage: 40 MILLIGRAM
     Route: 048
     Dates: start: 20110505, end: 20110529
  40. PENTAZOCINE LACTATE [Concomitant]
     Dosage: 15 MILLIGRAM
     Route: 041
     Dates: start: 20110601, end: 20110601
  41. GRANISETRON [Concomitant]
     Dosage: 2 DOSAGE FORMS
     Route: 041
     Dates: start: 20110330, end: 20110404
  42. ELNEOPA NO. 1 [Concomitant]
     Dosage: 1000 MILLILITER
     Route: 041
     Dates: start: 20110413, end: 20110414
  43. EXACIN [Concomitant]
     Dosage: 400 MILLIGRAM
     Route: 041
     Dates: start: 20110518, end: 20110531
  44. FAMOTIDINE [Concomitant]
     Dosage: 20 MILLIGRAM
     Route: 041
     Dates: start: 20110601, end: 20110607
  45. VOGLIBOSE [Concomitant]
     Dosage: 3 DOSAGE FORMS
     Route: 048
     Dates: start: 20110330, end: 20110412
  46. UNASYN [Concomitant]
     Dosage: 200 MILLIGRAM
     Route: 048
     Dates: start: 20110406, end: 20110415
  47. TAIPERACILIN [Concomitant]
     Dosage: 3 DOSAGE FORMS
     Route: 041
     Dates: start: 20110410, end: 20110413
  48. TPN ELECTROLYTES IN PLASTIC CONTAINER [Concomitant]
     Dosage: 1000 MILLILITER
     Route: 041
     Dates: start: 20110412, end: 20110413
  49. AMBISOME [Concomitant]
     Dosage: 150 MILLIGRAM
     Route: 041
     Dates: start: 20110518, end: 20110607
  50. AMIKACIN [Concomitant]
     Dosage: 400 MILLIGRAM
     Route: 050
     Dates: start: 20110430, end: 20110512
  51. MORPHINE HYDROCHLORIDE HYDRATE [Concomitant]
     Dosage: 10-2DF
     Route: 041
     Dates: start: 20110601, end: 20110607

REACTIONS (22)
  - HYPERBILIRUBINAEMIA [None]
  - HYPERKALAEMIA [None]
  - NAUSEA [None]
  - BLOOD CREATININE INCREASED [None]
  - SEPSIS [None]
  - PYREXIA [None]
  - HEPATIC MASS [None]
  - HAEMORRHAGE SUBCUTANEOUS [None]
  - HYPERGLYCAEMIA [None]
  - DIARRHOEA [None]
  - FLUID RETENTION [None]
  - HYPERCHLORAEMIA [None]
  - PNEUMONIA [None]
  - HYPOKALAEMIA [None]
  - PANCYTOPENIA [None]
  - HYPONATRAEMIA [None]
  - BLOOD UREA INCREASED [None]
  - RASH [None]
  - VOMITING [None]
  - CONSTIPATION [None]
  - HYPOALBUMINAEMIA [None]
  - HYPERNATRAEMIA [None]
